FAERS Safety Report 13614397 (Version 1)
Quarter: 2017Q2

REPORT INFORMATION
  Report Type: Spontaneous
  Country: US (occurrence: US)
  Receive Date: 20170606
  Receipt Date: 20170606
  Transmission Date: 20170830
  Serious: No
  Sender: FDA-Public Use
  Company Number: US-PFIZER INC-3177644

PATIENT
  Age: 31 Year
  Sex: Female
  Weight: 68 kg

DRUGS (1)
  1. EPINEPHRINE/LIDOCAINE HYDROCHLORIDE [Suspect]
     Active Substance: EPINEPHRINE\LIDOCAINE HYDROCHLORIDE
     Indication: NASAL SEPTAL OPERATION
     Dosage: ONCE
     Dates: start: 20160216

REACTIONS (2)
  - Suspected product tampering [None]
  - Bradycardia [Recovered/Resolved]

NARRATIVE: CASE EVENT DATE: 20160216
